FAERS Safety Report 10258533 (Version 1)
Quarter: 2014Q2

REPORT INFORMATION
  Report Type: Report from Study
  Country: IN (occurrence: IN)
  Receive Date: 20140625
  Receipt Date: 20140625
  Transmission Date: 20141212
  Serious: Yes (Life-Threatening, Hospitalization, Other)
  Sender: FDA-Public Use
  Company Number: PHHY2014IN076805

PATIENT
  Age: 11 Year
  Sex: 0

DRUGS (2)
  1. DESFERAL [Suspect]
     Indication: IRON OVERLOAD
     Dosage: UNK
  2. DESFERAL [Suspect]
     Dosage: LOWER DOSAGE

REACTIONS (1)
  - Full blood count decreased [Recovered/Resolved]
